FAERS Safety Report 8406601-8 (Version None)
Quarter: 2012Q2

REPORT INFORMATION
  Report Type: 
  Country: None (occurrence: None)
  Receive Date: 20120529
  Receipt Date: 20000713
  Transmission Date: 20120825
  Serious: Yes (Hospitalization, Other)
  Sender: FDA-Public Use
  Company Number: 02100-JPN-00-0054

PATIENT
  Age: 82 Year
  Sex: Female
  Weight: 40 kg

DRUGS (12)
  1. PLETAL [Suspect]
     Indication: PROPHYLAXIS
     Dosage: 100 MG, BID, ORAL
     Route: 048
     Dates: start: 20000624, end: 20000712
  2. OSTEN (IPRIFLAVONE) TABLET [Concomitant]
  3. ALTAT (ROXATIDINE ACETATE HYDROCHLORIDE) CAPSULE [Concomitant]
  4. ITOROL (ISOSORBIDE MONONITRATE) TABLET [Concomitant]
  5. AMLODIN (AMLODIPINE BESILATE) TABLET [Concomitant]
  6. TERNELIN (TIZANIDINE HYDROCHLORIDE) TABLET [Concomitant]
  7. ONE-ALPHA (ALFACALCIDOL) TABLET [Concomitant]
  8. LOXONIN (LOXOPROFEN SODIUM) TABLET [Concomitant]
  9. LACTEC (SODIUM LACTATE, POTASSIUM CHLORIDE, SODIUM CHLORIDE, CALCIUM C [Concomitant]
  10. ELECTROLYTE REPLINISHER (ELECTROLYTE REPLINISHER) ORAL LIQUID [Concomitant]
  11. LASIX [Concomitant]
  12. MUCOSTA (REBAMIPIDE) TABLET [Concomitant]

REACTIONS (7)
  - ANAEMIA [None]
  - TOXIC EPIDERMAL NECROLYSIS [None]
  - PULMONARY CONGESTION [None]
  - URINE OUTPUT INCREASED [None]
  - TUBULOINTERSTITIAL NEPHRITIS [None]
  - RENAL FAILURE ACUTE [None]
  - EOSINOPHILIA [None]
